FAERS Safety Report 17423916 (Version 1)
Quarter: 2020Q1

REPORT INFORMATION
  Report Type: Report from Study
  Country: US (occurrence: US)
  Receive Date: 20200217
  Receipt Date: 20200217
  Transmission Date: 20200409
  Serious: No
  Sender: FDA-Public Use
  Company Number: NVSC2020US041363

PATIENT
  Sex: Male

DRUGS (1)
  1. ILARIS [Suspect]
     Active Substance: CANAKINUMAB
     Indication: STILL^S DISEASE
     Dosage: 150 MG (Q 28 DAYS)
     Route: 058
     Dates: start: 20171120

REACTIONS (3)
  - Nasal discomfort [Unknown]
  - Cough [Unknown]
  - Oropharyngeal pain [Unknown]
